FAERS Safety Report 4289663-1 (Version None)
Quarter: 2004Q1

REPORT INFORMATION
  Report Type: 
  Country: None (occurrence: None)
  Receive Date: 20040206
  Receipt Date: 20040127
  Transmission Date: 20041129
  Serious: Yes (Other)
  Sender: FDA-Public Use
  Company Number: K200400114

PATIENT
  Age: 33 Year
  Sex: Female

DRUGS (2)
  1. NORDETTE-21(LEVONORGESTREL, ETHINYLESTRADIOL) TABLET, 0.15 MG [Suspect]
     Indication: CONTRACEPTION
     Dosage: 0.15 MG LEVON/ .03MG ESTRADIOL,QD,ORAL
     Route: 048
     Dates: start: 19990127
  2. EFFEXOR [Suspect]
     Dosage: QD
     Dates: start: 20020328

REACTIONS (2)
  - DRUG INTERACTION [None]
  - UNINTENDED PREGNANCY [None]
